FAERS Safety Report 7755341-7 (Version None)
Quarter: 2011Q3

REPORT INFORMATION
  Report Type: 
  Country: None (occurrence: None)
  Receive Date: 20110913
  Receipt Date: 20110907
  Transmission Date: 20111222
  Serious: Yes (Other)
  Sender: FDA-Public Use
  Company Number: DSA_47028_2011

PATIENT
  Sex: Male
  Weight: 83.9154 kg

DRUGS (3)
  1. XENAZINE [Suspect]
     Indication: HUNTINGTON'S DISEASE
     Dosage: (12.5 MG BID ORAL)
     Route: 048
     Dates: start: 20100805, end: 20110614
  2. MULTI-VITAMINS [Concomitant]
  3. LEXAPRO [Concomitant]

REACTIONS (2)
  - DEPRESSION [None]
  - SEDATION [None]
